FAERS Safety Report 25419323 (Version 1)
Quarter: 2025Q2

REPORT INFORMATION
  Report Type: Spontaneous
  Country: US (occurrence: US)
  Receive Date: 20250610
  Receipt Date: 20250610
  Transmission Date: 20250717
  Serious: No
  Sender: INCYTE
  Company Number: US-EVENT-002988

PATIENT
  Age: 67 Year

DRUGS (1)
  1. OPZELURA [Suspect]
     Active Substance: RUXOLITINIB PHOSPHATE
     Indication: Dermatitis atopic
     Dosage: 1.5 PERCENT, BID (APPLY TO AFFECTED AREA(S) OF BODY TWICE DAILY AS DIRECTED)
     Route: 065

REACTIONS (1)
  - Ill-defined disorder [Unknown]
